FAERS Safety Report 8379566-5 (Version None)
Quarter: 2012Q1

REPORT INFORMATION
  Report Type: 
  Country: None (occurrence: None)
  Receive Date: 20120323
  Receipt Date: 20110325
  Transmission Date: 20120608
  Serious: Yes (Hospitalization)
  Sender: FDA-Public Use
  Company Number: 163-21880-11033142

PATIENT
  Age: 62 Year
  Sex: Male

DRUGS (9)
  1. REVLIMID [Suspect]
     Indication: MULTIPLE MYELOMA
     Dosage: 25 MG, DAILY X 3 WEEKS, PO
     Route: 048
     Dates: start: 20101218
  2. ISMO [Concomitant]
  3. OXYCONTIN [Concomitant]
  4. LIPITOR [Concomitant]
  5. MORPHINE [Concomitant]
  6. FUROSEMIDE [Concomitant]
  7. POTASSIUM CHLORIDE [Concomitant]
  8. LISINOPRIL [Concomitant]
  9. METOPROLOL [Concomitant]

REACTIONS (1)
  - THROMBOSIS [None]
